FAERS Safety Report 9911398 (Version 2)
Quarter: 2014Q1

REPORT INFORMATION
  Report Type: Spontaneous
  Country: US (occurrence: US)
  Receive Date: 20140219
  Receipt Date: 20140219
  Transmission Date: 20141002
  Serious: No
  Sender: FDA-Public Use
  Company Number: US-GILEAD-2012-0055549

PATIENT
  Sex: Male

DRUGS (3)
  1. LETAIRIS [Suspect]
     Indication: PULMONARY ARTERIAL HYPERTENSION
     Dosage: 5 MG, UNK
     Route: 048
     Dates: start: 20120501
  2. LETAIRIS [Suspect]
     Dosage: 10 UNK, UNK
     Route: 048
  3. VENTAVIS [Suspect]

REACTIONS (2)
  - Coagulopathy [Unknown]
  - Oedema [Unknown]
